FAERS Safety Report 14307154 (Version 8)
Quarter: 2020Q3

REPORT INFORMATION
  Report Type: Other
  Country: CA (occurrence: CA)
  Receive Date: 20171220
  Receipt Date: 20200722
  Transmission Date: 20201102
  Serious: Yes (Life-Threatening, Hospitalization, Other)
  Sender: FDA-Public Use
  Company Number: CA-APOTEX-2017AP022542

PATIENT
  Age: 67 Year
  Sex: Male

DRUGS (11)
  1. CLARITHROMYCIN. [Suspect]
     Active Substance: CLARITHROMYCIN
     Indication: PNEUMONIA
     Dosage: 500 MG, BID
     Route: 048
  2. ETHAMBUTOL [Suspect]
     Active Substance: ETHAMBUTOL HYDROCHLORIDE
     Indication: PNEUMONIA
     Dosage: 1200 MG, QD
     Route: 065
  3. CLARITHROMYCIN. [Suspect]
     Active Substance: CLARITHROMYCIN
     Indication: MYCOBACTERIAL INFECTION
     Dosage: 500 MG, BID
     Route: 048
  4. ETIBI [Suspect]
     Active Substance: ETHAMBUTOL HYDROCHLORIDE
     Indication: MYCOBACTERIAL INFECTION
     Dosage: 1200 MG, QD
     Route: 048
  5. MOXIFLOXACIN. [Suspect]
     Active Substance: MOXIFLOXACIN
     Indication: PNEUMONIA
     Dosage: 400 MG, QD
     Route: 048
  6. MOXIFLOXACIN. [Suspect]
     Active Substance: MOXIFLOXACIN
     Indication: MYCOBACTERIAL INFECTION
  7. AVELOX [Suspect]
     Active Substance: MOXIFLOXACIN HYDROCHLORIDE
     Indication: PNEUMONIA
     Dosage: UNK
     Route: 065
  8. AVELOX [Suspect]
     Active Substance: MOXIFLOXACIN HYDROCHLORIDE
     Indication: PNEUMONIA
     Dosage: 400 MILLIGRAM, QD
     Route: 048
  9. ETHAMBUTOL [Suspect]
     Active Substance: ETHAMBUTOL HYDROCHLORIDE
     Indication: MYCOBACTERIAL INFECTION
     Dosage: 1200 MG QD
     Route: 048
  10. AVELOX [Suspect]
     Active Substance: MOXIFLOXACIN HYDROCHLORIDE
     Indication: MYCOBACTERIAL INFECTION
  11. AVELOX [Suspect]
     Active Substance: MOXIFLOXACIN HYDROCHLORIDE
     Indication: MYCOBACTERIAL INFECTION

REACTIONS (9)
  - Mycobacterial infection [Recovered/Resolved]
  - Night sweats [Recovered/Resolved]
  - Condition aggravated [Recovered/Resolved]
  - Multiple-drug resistance [Recovered/Resolved]
  - Disease progression [Recovered/Resolved]
  - Arthralgia [Recovered/Resolved]
  - Product use in unapproved indication [Recovered/Resolved]
  - Weight decreased [Recovered/Resolved]
  - Drug resistance [Recovered/Resolved]
